FAERS Safety Report 11659516 (Version 1)
Quarter: 2015Q4

REPORT INFORMATION
  Report Type: Spontaneous
  Country: ZA (occurrence: None)
  Receive Date: 20151023
  Receipt Date: 20151023
  Transmission Date: 20160304
  Serious: Yes (Other)
  Sender: FDA-Public Use
  Company Number: None

PATIENT
  Age: 21 Year
  Sex: Female
  Weight: 51 kg

DRUGS (4)
  1. ELTROXIN [Concomitant]
     Active Substance: LEVOTHYROXINE
  2. AROPAX [Concomitant]
     Active Substance: PAROXETINE HYDROCHLORIDE
  3. NEUROFEN [Concomitant]
     Active Substance: IBUPROFEN
  4. CLINDAMYCIN [Suspect]
     Active Substance: CLINDAMYCIN\CLINDAMYCIN PHOSPHATE
     Indication: FURUNCLE
     Dosage: 28
     Route: 048

REACTIONS (3)
  - Confusional state [None]
  - Rash generalised [None]
  - Dyspepsia [None]

NARRATIVE: CASE EVENT DATE: 20151022
